FAERS Safety Report 6652637-7 (Version None)
Quarter: 2010Q1

REPORT INFORMATION
  Report Type: 
  Country: None (occurrence: None)
  Receive Date: 20100326
  Receipt Date: 20100317
  Transmission Date: 20100710
  Serious: No
  Sender: FDA-Public Use
  Company Number: US-BIOGENIDEC-2010BI009469

PATIENT
  Age: 55 Year
  Sex: Female

DRUGS (1)
  1. TYSABRI [Suspect]
     Indication: MULTIPLE SCLEROSIS
     Route: 042
     Dates: start: 20080101

REACTIONS (6)
  - EXOSTOSIS [None]
  - PNEUMONIA [None]
  - RESPIRATORY TRACT CONGESTION [None]
  - SINUSITIS [None]
  - SPUTUM DISCOLOURED [None]
  - TENDONITIS [None]
